FAERS Safety Report 14182615 (Version 1)
Quarter: 2017Q4

REPORT INFORMATION
  Report Type: Report from Study
  Country: US (occurrence: US)
  Receive Date: 20171113
  Receipt Date: 20171113
  Transmission Date: 20180321
  Serious: Yes (Life-Threatening, Disabling)
  Sender: FDA-Public Use
  Company Number: US-ROCHE-GNE010770

PATIENT
  Age: 62 Year
  Sex: Male
  Weight: 67.5 kg

DRUGS (1)
  1. ALTEPLASE. [Suspect]
     Active Substance: ALTEPLASE
     Indication: ISCHAEMIC STROKE
     Dosage: DOSE: 67.5 MG
     Route: 042

REACTIONS (3)
  - Vomiting [Unknown]
  - Nausea [Unknown]
  - Cerebral haematoma [Unknown]
